FAERS Safety Report 7461198-4 (Version None)
Quarter: 2011Q2

REPORT INFORMATION
  Report Type: 
  Country: None (occurrence: None)
  Receive Date: 20110505
  Receipt Date: 20110426
  Transmission Date: 20111010
  Serious: Yes (Hospitalization)
  Sender: FDA-Public Use
  Company Number: US-ASTRAZENECA-2011SE24970

PATIENT
  Age: 54 Year
  Sex: Female

DRUGS (2)
  1. CRESTOR [Suspect]
     Route: 048
  2. POTASSIUM [Concomitant]

REACTIONS (2)
  - CORONARY ARTERIAL STENT INSERTION [None]
  - MUSCLE SPASMS [None]
